FAERS Safety Report 6075330-0 (Version None)
Quarter: 2009Q1

REPORT INFORMATION
  Report Type: 
  Country: None (occurrence: None)
  Receive Date: 20090212
  Receipt Date: 20090202
  Transmission Date: 20090719
  Serious: Yes (Hospitalization)
  Sender: FDA-Public Use
  Company Number: FR-WATSON-2009-00834

PATIENT
  Age: 37 Year
  Sex: Female

DRUGS (2)
  1. NICARDIPINE (WATSON LABORATORIES) [Suspect]
     Indication: THREATENED LABOUR
     Dosage: UNK
     Route: 042
     Dates: start: 20060101
  2. BETAMETHASONE SODIUM PHOSPHATE [Suspect]
     Indication: IMMATURE RESPIRATORY SYSTEM
     Dosage: UNK
     Route: 030
     Dates: start: 20060101

REACTIONS (1)
  - ACUTE PULMONARY OEDEMA [None]
